FAERS Safety Report 8446930-5 (Version None)
Quarter: 2012Q2

REPORT INFORMATION
  Report Type: 
  Country: None (occurrence: None)
  Receive Date: 20120619
  Receipt Date: 20120608
  Transmission Date: 20120825
  Serious: Yes (Hospitalization)
  Sender: FDA-Public Use
  Company Number: FR-GE HEALTHCARE MEDICAL DIAGNOSTICS-VISP-NO-1206S-0277

PATIENT
  Sex: Male

DRUGS (10)
  1. ATORVASTATIN [Concomitant]
  2. METFORMIN HCL [Concomitant]
  3. VALIUM [Concomitant]
  4. LERCANIDIPINE [Concomitant]
  5. OMEPRAZOLE [Concomitant]
  6. VISIPAQUE [Suspect]
     Indication: PRODUCT USED FOR UNKNOWN INDICATION
     Route: 065
     Dates: start: 20120524, end: 20120524
  7. ASPIRIN [Concomitant]
  8. FLUINDIONE [Concomitant]
  9. PLAVIX [Suspect]
  10. VALSARTAN [Concomitant]

REACTIONS (4)
  - VASOPLEGIA SYNDROME [None]
  - URTICARIA [None]
  - HYPERSENSITIVITY [None]
  - FEELING HOT [None]
